FAERS Safety Report 19910610 (Version 2)
Quarter: 2021Q4

REPORT INFORMATION
  Report Type: Report from Study
  Country: US (occurrence: US)
  Receive Date: 20211004
  Receipt Date: 20211109
  Transmission Date: 20220303
  Serious: No
  Sender: FDA-Public Use
  Company Number: US-BIOVITRUM-2021US8632

PATIENT
  Sex: Female

DRUGS (5)
  1. SYNAGIS [Suspect]
     Active Substance: PALIVIZUMAB
     Indication: Antiviral prophylaxis
     Route: 030
  2. SILDENAFIL [Concomitant]
     Active Substance: SILDENAFIL
  3. FAMOTIDINE [Concomitant]
     Active Substance: FAMOTIDINE
  4. LACTULOSE [Concomitant]
     Active Substance: LACTULOSE
  5. DIURIL [Concomitant]
     Active Substance: CHLOROTHIAZIDE

REACTIONS (2)
  - Nasal congestion [Unknown]
  - Pyrexia [Unknown]
